FAERS Safety Report 8242470-7 (Version None)
Quarter: 2012Q1

REPORT INFORMATION
  Report Type: 
  Country: None (occurrence: None)
  Receive Date: 20120314
  Receipt Date: 20110520
  Transmission Date: 20120608
  Serious: Yes (Hospitalization)
  Sender: FDA-Public Use
  Company Number: PHHY2011US41332

PATIENT
  Age: 50 Year
  Sex: Female
  Weight: 99.5 kg

DRUGS (4)
  1. FANAPT [Suspect]
     Indication: PERSONALITY DISORDER
     Dosage: 6 DF, BID, ORAL 3 DF, BID
     Route: 048
     Dates: start: 20110405, end: 20110510
  2. VALIUM [Concomitant]
  3. LEXAPRO [Concomitant]
  4. AMBIEN [Concomitant]

REACTIONS (1)
  - ORTHOSTATIC HYPOTENSION [None]
